FAERS Safety Report 7680855-8 (Version None)
Quarter: 2011Q3

REPORT INFORMATION
  Report Type: 
  Country: None (occurrence: None)
  Receive Date: 20110812
  Receipt Date: 20110809
  Transmission Date: 20111222
  Serious: Yes (Death)
  Sender: FDA-Public Use
  Company Number: FR-MERCK-1101FRA00149

PATIENT
  Age: 76 Year
  Sex: Male
  Weight: 94 kg

DRUGS (7)
  1. TAMSULOSIN HYDROCHLORIDE [Concomitant]
     Route: 048
  2. FLUTICASONE PROPIONATE AND SALMETEROL XINAFOATE [Concomitant]
     Route: 048
  3. AMIODARONE HYDROCHLORIDE [Concomitant]
     Route: 048
  4. ACARBOSE [Concomitant]
     Indication: TYPE 2 DIABETES MELLITUS
     Route: 048
     Dates: start: 20090801
  5. FUROSEMIDE [Concomitant]
     Route: 048
  6. POTASSIUM GLUCONATE [Concomitant]
     Route: 048
  7. JANUVIA [Suspect]
     Indication: TYPE 2 DIABETES MELLITUS
     Route: 048
     Dates: start: 20091019, end: 20100315

REACTIONS (1)
  - CEREBROVASCULAR ACCIDENT [None]
